FAERS Safety Report 10191092 (Version 1)
Quarter: 2014Q2

REPORT INFORMATION
  Report Type: Spontaneous
  Country: US (occurrence: None)
  Receive Date: 20140521
  Receipt Date: 20140521
  Transmission Date: 20141212
  Serious: Yes (Hospitalization)
  Sender: FDA-Public Use
  Company Number: None

PATIENT
  Age: 32 Year
  Sex: Female
  Weight: 68.04 kg

DRUGS (2)
  1. MULTIHANCE [Suspect]
     Indication: ARTHROGRAM
     Route: 014
     Dates: start: 20140430
  2. MULTIHANCE [Suspect]
     Route: 014
     Dates: start: 20140430

REACTIONS (3)
  - Pharyngeal oedema [None]
  - Pruritus [None]
  - Urticaria [None]
